FAERS Safety Report 9705856 (Version 1)
Quarter: 2013Q4

REPORT INFORMATION
  Report Type: Spontaneous
  Country: AT (occurrence: AT)
  Receive Date: 20131122
  Receipt Date: 20131122
  Transmission Date: 20140711
  Serious: Yes (Other)
  Sender: FDA-Public Use
  Company Number: AT-WATSON-2013-21147

PATIENT
  Sex: Male
  Weight: 75 kg

DRUGS (1)
  1. MECAIN ACTAVIS [Suspect]
     Indication: PRODUCT USED FOR UNKNOWN INDICATION
     Dosage: 80 MG, DAILY
     Route: 065
     Dates: start: 20131106

REACTIONS (1)
  - Drug ineffective [Unknown]
